FAERS Safety Report 15806575 (Version 1)
Quarter: 2019Q1

REPORT INFORMATION
  Report Type: Spontaneous
  Country: US (occurrence: US)
  Receive Date: 20190107
  Receipt Date: 20190107
  Transmission Date: 20190417
  Serious: No
  Sender: FDA-Public Use
  Company Number: None

PATIENT

DRUGS (2)
  1. ALBUTEROL SULFATE. [Suspect]
     Active Substance: ALBUTEROL SULFATE
     Dosage: 0.5ML UNIT OF USE VIAL?SOLUTION
     Route: 055
  2. SODIUM CHLORIDE 0.9% SOLUTION [Suspect]
     Active Substance: SODIUM CHLORIDE
     Dosage: 3 ML UNIT DOSE  VIAL?SOLUTION
     Route: 055

REACTIONS (1)
  - Product appearance confusion [None]
